FAERS Safety Report 9002371 (Version 1)
Quarter: 2012Q4

REPORT INFORMATION
  Report Type: Spontaneous
  Country: US (occurrence: None)
  Receive Date: 20121123
  Receipt Date: 20121123
  Transmission Date: 20130627
  Serious: Yes (Other)
  Sender: FDA-Public Use
  Company Number: 2012-1305

PATIENT
  Age: 66 Year
  Sex: Male
  Weight: 120.6 kg

DRUGS (22)
  1. CARFILZOMIB [Suspect]
     Indication: MULTIPLE MYELOMA
     Dosage: (52 mg, days, 1,2), Intravenous
     Dates: start: 20090906
  2. CARFILZOMIB [Suspect]
     Indication: MULTIPLE MYELOMA
     Dosage: (Days 1, 2), Intravenous
     Dates: start: 20120814, end: 20120815
  3. ZOMETA [Concomitant]
  4. CARIMUNE NF (IMMUNOGLOBULIN HUMAN NORMAL) (IMMUNOGLOBULIN HUMAN NORMAL) [Concomitant]
  5. TESTOSTERONE ENANTHATE (TESTOSTERONE ENANTHATE) (TESTOSTERONE ENANTHATE) [Concomitant]
  6. ACYCLOVIR (ACICLOVIR) (TABLET) (ACICLOVIR) [Concomitant]
  7. LYRICA (PREGABALIN) (CAPSULE) (PREGABALIN) [Concomitant]
  8. SYNTHROID (LEVOTHYROXINE SODIUM) (TABLET) (LEVOTHYROXINE SODIUM) [Concomitant]
  9. ZANTAC (RANITIDINE HYDROCHLORIDE) (TABLET) (RANITIDINE HYDROCHLORIDE) [Concomitant]
  10. LUNESTA (ESZOPICLONE) (TABLET) (ESZOPICLONE) [Concomitant]
  11. MELATONIN (MELATONIN) (TABLET) (MELATONIN) [Concomitant]
  12. COMPLETE SENIOR (PYRIDOXINE HYDROCHLORIDE) (TABLET) (PYRIDOXINE HYDROCHLORIDE) [Concomitant]
  13. VITAMIN C (ASCORBIC ACID) (TABLET) (ASCORBIC ACID) [Concomitant]
  14. VITAMIN D (ERGOCALCIFEROL) (ERGOCALCIFEROL) [Concomitant]
  15. GLUCOSAMINE-CHONDROITIN (CHONDROITIN SULFATE) (TABLET) (CHONDROITIN SULFATE) [Concomitant]
  16. ALLEGRA (FEXOFENADINE HYDROCHLORIDE) (TABLET) (FEXOFENADINE HYDROCHLORIDE) [Concomitant]
  17. SYMBICORT (FORMOTEROL FUMURATE) (AEROSOL FOR INHALATION) (FORMOTEROL FUMARATE) [Concomitant]
  18. PHOS-NAK PACK (SODIUM PHOSPHATE DIBASIC) (SODIUM PHOSPHATE DIBASIC) [Concomitant]
  19. NEUPOGEN (FILGRASTIM) (FILGRASTIM) [Concomitant]
  20. DEXAMETHASONE (DEXAMETHASONE) (TABLET) (DEXAMETHASONE) [Concomitant]
  21. THALIDOMIDE (THALIDOMIDE) (THALIDOMIDE) [Concomitant]
  22. VORINOSTAT (VORINOSTAT) (VORINOSTAT) [Concomitant]

REACTIONS (1)
  - Squamous cell carcinoma of skin [None]
